FAERS Safety Report 5042792-7 (Version None)
Quarter: 2006Q2

REPORT INFORMATION
  Report Type: 
  Country: None (occurrence: None)
  Receive Date: 20060601
  Receipt Date: 20060224
  Transmission Date: 20061013
  Serious: No
  Sender: FDA-Public Use
  Company Number: 2006PV009242

PATIENT
  Age: 49 Year
  Sex: Female

DRUGS (5)
  1. BYETTA [Suspect]
     Indication: DIABETES MELLITUS NON-INSULIN-DEPENDENT
     Dosage: 5 MCG;QD;SC
     Route: 058
     Dates: start: 20060101
  2. METFORMIN [Concomitant]
  3. ACTOS [Concomitant]
  4. GLUCOTROL [Concomitant]
  5. PROZAC [Concomitant]

REACTIONS (2)
  - ANXIETY [None]
  - DEPRESSION [None]
